FAERS Safety Report 4640298-8 (Version None)
Quarter: 2005Q2

REPORT INFORMATION
  Report Type: 
  Country: None (occurrence: None)
  Receive Date: 20050420
  Receipt Date: 20040421
  Transmission Date: 20051028
  Serious: No
  Sender: FDA-Public Use
  Company Number: US-GLAXOSMITHKLINE-A0507917A

PATIENT

DRUGS (2)
  1. ESKALITH [Suspect]
     Dosage: 450MG PER DAY
     Route: 048
  2. LITHIUM CARBONATE [Concomitant]

REACTIONS (1)
  - SEDATION [None]
